FAERS Safety Report 7537389-0 (Version None)
Quarter: 2011Q2

REPORT INFORMATION
  Report Type: 
  Country: None (occurrence: None)
  Receive Date: 20110608
  Receipt Date: 20110608
  Transmission Date: 20111010
  Serious: No
  Sender: FDA-Public Use
  Company Number: None

PATIENT
  Sex: Female
  Weight: 43.5 kg

DRUGS (11)
  1. PEG-L ASPARAGINASE (PEGASPARGASE, ONCOSPAR) [Suspect]
     Dosage: 168.75 MG
  2. DOXORUBICIN HYDROCHLORIDE [Suspect]
     Dosage: 33 MG
     Dates: end: 20110531
  3. VERSED [Concomitant]
  4. FENTANYL-100 [Concomitant]
  5. VINCRISTINE SULFATE [Suspect]
     Dosage: 2 MG
     Dates: end: 20110531
  6. KYTRIL [Concomitant]
  7. MARINOL [Concomitant]
  8. ZOFRAN [Concomitant]
  9. METHOTREXATE [Suspect]
     Dosage: 15MG
     Dates: end: 20110531
  10. BACTRIM [Concomitant]
  11. DEXAMETHASONE [Suspect]
     Dosage: 47 MG
     Dates: end: 20110603

REACTIONS (5)
  - RASH MACULO-PAPULAR [None]
  - HYPERSENSITIVITY [None]
  - PRURITUS [None]
  - RASH ERYTHEMATOUS [None]
  - ANGIOEDEMA [None]
